FAERS Safety Report 6754436-4 (Version None)
Quarter: 2010Q2

REPORT INFORMATION
  Report Type: 
  Country: None (occurrence: None)
  Receive Date: 20100603
  Receipt Date: 20100520
  Transmission Date: 20101027
  Serious: Yes (Other)
  Sender: FDA-Public Use
  Company Number: PHHY2010FR33077

PATIENT
  Sex: Female

DRUGS (4)
  1. COTAREG [Suspect]
     Indication: HYPERTENSION
     Dosage: 80/12.5 MG
  2. ALPRAZOLAM [Suspect]
     Indication: ANXIETY
     Dosage: 1 DF, QD
     Dates: start: 20081001
  3. DI-ANTALVIC [Concomitant]
     Dosage: UNK
  4. SEROPLEX [Concomitant]
     Dosage: UNK

REACTIONS (8)
  - ACARODERMATITIS [None]
  - C-REACTIVE PROTEIN INCREASED [None]
  - DRY SKIN [None]
  - HAEMANGIOMA OF LIVER [None]
  - PRURIGO [None]
  - PRURITUS [None]
  - RENAL FUSION ANOMALY [None]
  - WHITE BLOOD CELL COUNT INCREASED [None]
